FAERS Safety Report 16761616 (Version 1)
Quarter: 2019Q3

REPORT INFORMATION
  Report Type: Spontaneous
  Country: AR (occurrence: AR)
  Receive Date: 20190830
  Receipt Date: 20190830
  Transmission Date: 20191005
  Serious: Yes (Other)
  Sender: FDA-Public Use
  Company Number: AR-PFIZER INC-2019369770

PATIENT
  Age: 68 Year
  Sex: Female

DRUGS (1)
  1. XELJANZ [Suspect]
     Active Substance: TOFACITINIB CITRATE
     Indication: RHEUMATOID ARTHRITIS
     Dosage: 5 MG, 2X/DAY
     Dates: start: 20180130

REACTIONS (4)
  - Paralysis [Unknown]
  - Spinal disorder [Unknown]
  - Adrenal disorder [Recovering/Resolving]
  - Single functional kidney [Recovering/Resolving]

NARRATIVE: CASE EVENT DATE: 201907
